FAERS Safety Report 4438858-2 (Version None)
Quarter: 2004Q3

REPORT INFORMATION
  Report Type: 
  Country: None (occurrence: None)
  Receive Date: 20040901
  Receipt Date: 20040826
  Transmission Date: 20050211
  Serious: Yes (Hospitalization)
  Sender: FDA-Public Use
  Company Number: 200418471GDDC

PATIENT
  Age: 58 Year
  Sex: Female

DRUGS (4)
  1. FLUDEX [Suspect]
     Route: 048
     Dates: end: 20031228
  2. NOVORAPID [Concomitant]
  3. NOVOMIX [Concomitant]
  4. OMEPRAZOLE [Concomitant]

REACTIONS (3)
  - HEPATIC CIRRHOSIS [None]
  - HEPATIC ENCEPHALOPATHY [None]
  - HEPATIC FAILURE [None]
